FAERS Safety Report 4933217-8 (Version None)
Quarter: 2006Q1

REPORT INFORMATION
  Report Type: 
  Country: None (occurrence: None)
  Receive Date: 20060306
  Receipt Date: 20050706
  Transmission Date: 20060701
  Serious: Yes (Disabling, Other)
  Sender: FDA-Public Use
  Company Number: US-MERCK-0507USA00844

PATIENT
  Age: 50 Year
  Sex: Female
  Weight: 64 kg

DRUGS (3)
  1. VIOXX [Suspect]
     Indication: ARTHRITIS
     Route: 048
     Dates: start: 20021125, end: 20021201
  2. BEXTRA [Concomitant]
     Route: 065
  3. CELEBREX [Concomitant]
     Route: 065

REACTIONS (9)
  - ABDOMINAL PAIN UPPER [None]
  - BACK PAIN [None]
  - BRONCHITIS CHRONIC [None]
  - CEREBROVASCULAR ACCIDENT [None]
  - ENTEROCELE [None]
  - FIBROMYALGIA [None]
  - GASTRITIS [None]
  - RECTOCELE [None]
  - TRANSIENT ISCHAEMIC ATTACK [None]
